FAERS Safety Report 6999064-0 (Version None)
Quarter: 2010Q3

REPORT INFORMATION
  Report Type: 
  Country: None (occurrence: None)
  Receive Date: 20100920
  Receipt Date: 20100914
  Transmission Date: 20110219
  Serious: Yes (Other)
  Sender: FDA-Public Use
  Company Number: US-ASTRAZENECA-2007UW06131

PATIENT
  Age: 44 Year
  Sex: Female
  Weight: 87.5 kg

DRUGS (15)
  1. SEROQUEL [Suspect]
     Indication: DEPRESSION
     Dosage: 100-150 MG
     Route: 048
     Dates: start: 20030101, end: 20060101
  2. SEROQUEL [Suspect]
     Indication: BIPOLAR DISORDER
     Dosage: 100-150 MG
     Route: 048
     Dates: start: 20030101, end: 20060101
  3. SEROQUEL [Suspect]
     Dosage: 100 MG - 300 MG, FLUCTUATING DOSE
     Route: 048
     Dates: start: 20030916
  4. SEROQUEL [Suspect]
     Dosage: 100 MG - 300 MG, FLUCTUATING DOSE
     Route: 048
     Dates: start: 20030916
  5. ZYPREXA [Concomitant]
     Indication: DEPRESSION
     Dates: start: 20040901, end: 20041201
  6. ZYPREXA [Concomitant]
     Dates: start: 20041117
  7. ZYPREXA [Concomitant]
     Dates: start: 20050101
  8. CYMBALTA [Concomitant]
     Dates: start: 20041117
  9. AMBIEN [Concomitant]
     Indication: SLEEP DISORDER
     Route: 048
     Dates: start: 20041117
  10. VISTARIL [Concomitant]
     Indication: ANXIETY
     Route: 048
     Dates: start: 20050301
  11. EFFEXOR XR [Concomitant]
     Dates: start: 20041117
  12. RISPERDAL [Concomitant]
     Dates: start: 20041117
  13. REMERON [Concomitant]
     Indication: DEPRESSION
     Dosage: 30 MG - 45 MG
     Dates: start: 20031122
  14. WELLBUTRIN [Concomitant]
     Dates: start: 20031122
  15. SOMA [Concomitant]
     Dates: start: 19911110

REACTIONS (8)
  - BACK DISORDER [None]
  - BLOOD CHOLESTEROL INCREASED [None]
  - CARPAL TUNNEL SYNDROME [None]
  - DIABETES MELLITUS [None]
  - GLUCOSE TOLERANCE IMPAIRED [None]
  - HYPERLIPIDAEMIA [None]
  - NEUROPATHY PERIPHERAL [None]
  - TYPE 2 DIABETES MELLITUS [None]
